FAERS Safety Report 6497241-9 (Version None)
Quarter: 2009Q4

REPORT INFORMATION
  Report Type: 
  Country: None (occurrence: None)
  Receive Date: 20091215
  Receipt Date: 20090828
  Transmission Date: 20100525
  Serious: No
  Sender: FDA-Public Use
  Company Number: A0796897A

PATIENT
  Age: 78 Year
  Sex: Male

DRUGS (7)
  1. AVODART [Suspect]
     Indication: BENIGN PROSTATIC HYPERPLASIA
     Dosage: 1CAP ALTERNATE DAYS
     Route: 048
     Dates: start: 20080101, end: 20090601
  2. PAROXETINE HCL [Concomitant]
  3. SIMVASTATIN [Concomitant]
  4. VITAMINS [Concomitant]
  5. FIBERCON [Concomitant]
  6. LISINOPRIL [Concomitant]
  7. CARVEDILOL [Concomitant]

REACTIONS (4)
  - BREAST PAIN [None]
  - BREAST SWELLING [None]
  - BREAST TENDERNESS [None]
  - PROSTATIC SPECIFIC ANTIGEN DECREASED [None]
